FAERS Safety Report 5054550-8 (Version None)
Quarter: 2006Q3

REPORT INFORMATION
  Report Type: 
  Country: None (occurrence: None)
  Receive Date: 20060714
  Receipt Date: 20060626
  Transmission Date: 20061208
  Serious: Yes (Hospitalization)
  Sender: FDA-Public Use
  Company Number: JP200606005866

PATIENT
  Sex: Female

DRUGS (2)
  1. GEMZAR [Suspect]
     Indication: TRANSITIONAL CELL CARCINOMA
     Dosage: INTRAVENOUS
     Route: 042
     Dates: start: 20060203, end: 20060601
  2. TAXOTERE [Concomitant]

REACTIONS (1)
  - PANCREATITIS [None]
